FAERS Safety Report 11249830 (Version 2)
Quarter: 2015Q4

REPORT INFORMATION
  Report Type: Spontaneous
  Country: US (occurrence: US)
  Receive Date: 20150708
  Receipt Date: 20151001
  Transmission Date: 20160304
  Serious: Yes (Other)
  Sender: FDA-Public Use
  Company Number: US-TEVA-575302USA

PATIENT
  Age: 64 Year
  Sex: Female

DRUGS (2)
  1. CISPLATIN. [Suspect]
     Active Substance: CISPLATIN
     Indication: BREAST CANCER
     Route: 042
     Dates: start: 20130131, end: 20131121
  2. CARBOPLATIN. [Suspect]
     Active Substance: CARBOPLATIN
     Indication: BREAST CANCER
     Route: 065
     Dates: start: 20120913, end: 20130113

REACTIONS (6)
  - Chest pain [Recovered/Resolved]
  - Nausea [Recovered/Resolved]
  - Drug hypersensitivity [Unknown]
  - Flushing [Recovered/Resolved]
  - Hypotension [Recovered/Resolved]
  - Hypersensitivity [Recovered/Resolved]

NARRATIVE: CASE EVENT DATE: 20130117
